FAERS Safety Report 22082674 (Version 2)
Quarter: 2023Q2

REPORT INFORMATION
  Report Type: Spontaneous
  Country: FR (occurrence: FR)
  Receive Date: 20230310
  Receipt Date: 20230517
  Transmission Date: 20230721
  Serious: Yes (Other)
  Sender: FDA-Public Use
  Company Number: FR-AMGEN-FRASP2023039103

PATIENT
  Age: 77 Year
  Sex: Male

DRUGS (1)
  1. REPATHA [Suspect]
     Active Substance: EVOLOCUMAB
     Indication: Product used for unknown indication
     Dosage: UNK
     Route: 065
     Dates: start: 20230110

REACTIONS (8)
  - Neuropathy peripheral [Not Recovered/Not Resolved]
  - Peripheral coldness [Unknown]
  - Sciatica [Unknown]
  - Road traffic accident [Unknown]
  - Blood glucagon increased [Unknown]
  - Blood creatinine increased [Unknown]
  - Arteriosclerosis [Unknown]
  - Back pain [Unknown]

NARRATIVE: CASE EVENT DATE: 20230206
